FAERS Safety Report 7946339-4 (Version None)
Quarter: 2011Q4

REPORT INFORMATION
  Report Type: 
  Country: None (occurrence: None)
  Receive Date: 20111129
  Receipt Date: 20111118
  Transmission Date: 20120403
  Serious: Yes (Hospitalization)
  Sender: FDA-Public Use
  Company Number: US-ACTELION-A-NJ2011-57300

PATIENT

DRUGS (3)
  1. TRACLEER [Suspect]
     Indication: PULMONARY ARTERIAL HYPERTENSION
     Dosage: UNK
     Route: 048
     Dates: start: 20080411
  2. REVATIO [Concomitant]
  3. COUMADIN [Concomitant]

REACTIONS (3)
  - CARDIAC FLUTTER [None]
  - CARDIAC ABLATION [None]
  - PHLEBITIS [None]
